FAERS Safety Report 5168197-6 (Version None)
Quarter: 2006Q4

REPORT INFORMATION
  Report Type: 
  Country: None (occurrence: None)
  Receive Date: 20061208
  Receipt Date: 20061201
  Transmission Date: 20070319
  Serious: Yes (Other)
  Sender: FDA-Public Use
  Company Number: US-JNJFOC-20061200693

PATIENT
  Sex: Male

DRUGS (10)
  1. REMICADE [Suspect]
     Indication: CROHN'S DISEASE
     Route: 042
  2. NEXIUM [Concomitant]
  3. B 12 [Concomitant]
  4. ACTONIL [Concomitant]
  5. 6-MP [Concomitant]
  6. MAGNESIUM [Concomitant]
  7. TRAMADOL HCL [Concomitant]
  8. TRAZEDONE [Concomitant]
  9. OSCAL [Concomitant]
  10. VITAMIN D [Concomitant]

REACTIONS (1)
  - PENIS CARCINOMA [None]
